FAERS Safety Report 10677841 (Version 1)
Quarter: 2014Q4

REPORT INFORMATION
  Report Type: Spontaneous
  Country: JP (occurrence: None)
  Receive Date: 20141223
  Receipt Date: 20141223
  Transmission Date: 20150529
  Serious: Yes (Death, Hospitalization, Other)
  Sender: FDA-Public Use
  Company Number: AXC-2014-000773

PATIENT
  Age: 28 Year
  Sex: Female

DRUGS (15)
  1. ALEVIATIN [Suspect]
     Active Substance: PHENYTOIN SODIUM
     Indication: EPILEPSY
     Dosage: 70 MG, BID (AFTER BREAKFAST AND DINNER), ORAL
     Route: 048
     Dates: start: 20140901
  2. AVELOX [Suspect]
     Active Substance: MOXIFLOXACIN HYDROCHLORIDE
     Indication: PNEUMONIA
     Dosage: 400 MG, QD (IN THE MORNING), ORAL
     Route: 048
     Dates: start: 20141028, end: 20141106
  3. BENZMARONE (BENZBROMARONE) TABLET [Suspect]
     Active Substance: BENZBROMARONE
     Indication: HYPERURICAEMIA
     Dosage: 50 MG, QD (AFTER BREAKFAST), ORAL
     Route: 048
     Dates: start: 20140901
  4. URALYT U /01675401/ [Suspect]
     Active Substance: POTASSIUM CITRATE\TRISODIUM CITRATE DIHYDRATE
     Indication: THERAPEUTIC PROCEDURE
     Route: 048
     Dates: start: 20140901
  5. BFLUID (AMINO ACIDS NOS, ELECTROLYTES NOS, GLUCOSE, THIAMINE HYDROCHLORIDE) [Concomitant]
  6. ZITHROMAC [Suspect]
     Active Substance: AZITHROMYCIN DIHYDRATE
     Indication: PNEUMONIA
     Route: 048
     Dates: start: 20141107, end: 20141109
  7. ISOPRINOSINE [Suspect]
     Active Substance: INOSINE PRANOBEX
     Indication: SUBACUTE SCLEROSING PANENCEPHALITIS
     Dosage: 1600 MG, QD (400MG-400MG-800 MG, AFTER EACH MEAL), ORAL
     Route: 048
     Dates: start: 20140901
  8. GASTER [Suspect]
     Active Substance: FAMOTIDINE
     Indication: GASTROOESOPHAGEAL REFLUX DISEASE
     Dosage: 20 MG, BID (AFTER BREAKFAST AND DINNER), ORAL
     Route: 048
     Dates: start: 20140901
  9. CEFTRIAXONE SODIUM. [Suspect]
     Active Substance: CEFTRIAXONE SODIUM
     Indication: PNEUMONIA
     Route: 041
     Dates: start: 20141110, end: 20141113
  10. MIYA-BM [Suspect]
     Active Substance: CLOSTRIDIUM BUTYRICUM SPORES STRAIN M-55
     Indication: CONSTIPATION
     Dosage: 2 DF, TID (AFTER EACH MEAL), ORAL
     Route: 048
     Dates: start: 20140901
  11. MINOFIT (MONOAMMONIUM GLYCYRRHIZINATE GLYCINE L-CYSTEINE COMBINED) [Concomitant]
  12. URSODEOXYCHOLIC ACID [Suspect]
     Active Substance: URSODIOL
     Indication: CHOLESTASIS
     Dosage: 100 MG, TID (AFTER EACH MEAL), ORAL
     Route: 048
     Dates: start: 20140901
  13. VALPROATE SODIUM. [Suspect]
     Active Substance: VALPROATE SODIUM
     Indication: EPILEPSY
     Dosage: 400 MG, BID (IN THE MORNING AND EVENING), ORAL
     Route: 048
     Dates: start: 20140901
  14. AVELOX [Suspect]
     Active Substance: MOXIFLOXACIN HYDROCHLORIDE
     Indication: URINARY TRACT INFECTION
     Dosage: 400 MG, QD (IN THE MORNING), ORAL
     Route: 048
     Dates: start: 20141028, end: 20141106
  15. CRAVIT [Suspect]
     Active Substance: LEVOFLOXACIN
     Indication: PNEUMONIA
     Route: 041
     Dates: start: 20141110

REACTIONS (13)
  - Cardiac failure acute [None]
  - Jaundice [None]
  - Urinary tract infection [None]
  - Alanine aminotransferase increased [None]
  - Pneumonia [None]
  - Gamma-glutamyltransferase increased [None]
  - Blood sodium decreased [None]
  - Pyrexia [None]
  - Drug-induced liver injury [None]
  - Blood bilirubin increased [None]
  - Hepatic function abnormal [None]
  - Acute kidney injury [None]
  - Aspartate aminotransferase increased [None]

NARRATIVE: CASE EVENT DATE: 201410
